FAERS Safety Report 9190086 (Version 2)
Quarter: 2013Q2

REPORT INFORMATION
  Report Type: Spontaneous
  Country: US (occurrence: US)
  Receive Date: 20130326
  Receipt Date: 20130507
  Transmission Date: 20140414
  Serious: Yes (Other)
  Sender: FDA-Public Use
  Company Number: US-PFIZER INC-2013094886

PATIENT
  Age: 64 Year
  Sex: Female
  Weight: 83.9 kg

DRUGS (8)
  1. CHANTIX [Suspect]
     Indication: SMOKING CESSATION THERAPY
     Dosage: 0.5 MG, 1X/DAY
     Route: 048
     Dates: start: 20130302, end: 201303
  2. CHANTIX [Suspect]
     Dosage: UNK
     Route: 048
     Dates: start: 201303, end: 201303
  3. CHANTIX [Suspect]
     Dosage: 0.5 MG, 2X/DAY
     Route: 048
     Dates: start: 20130318, end: 201304
  4. CHANTIX [Suspect]
     Dosage: UNK
     Route: 048
     Dates: start: 201304
  5. SYMBICORT [Concomitant]
     Indication: CHRONIC OBSTRUCTIVE PULMONARY DISEASE
     Dosage: 160 MG 2 PUFF TWICE DAILY
     Dates: start: 20121112
  6. SYMBICORT [Concomitant]
     Indication: ASTHMA
  7. SPIRIVA [Concomitant]
     Indication: CHRONIC OBSTRUCTIVE PULMONARY DISEASE
     Dosage: 18 UG, 1X/DAY
     Dates: start: 20121112
  8. FLUTICASONE [Concomitant]
     Indication: RHINITIS ALLERGIC
     Dosage: 50 MCG 2 PUFF INTERMITTENTLY

REACTIONS (7)
  - Road traffic accident [Unknown]
  - Altered state of consciousness [Not Recovered/Not Resolved]
  - Illusion [Not Recovered/Not Resolved]
  - Abnormal dreams [Not Recovered/Not Resolved]
  - Confusional state [Not Recovered/Not Resolved]
  - Impaired driving ability [Not Recovered/Not Resolved]
  - Judgement impaired [Recovered/Resolved]
